FAERS Safety Report 20932010 (Version 2)
Quarter: 2022Q2

REPORT INFORMATION
  Report Type: Other
  Country: TW (occurrence: None)
  Receive Date: 20220608
  Receipt Date: 20220627
  Transmission Date: 20220721
  Serious: Yes (Other)
  Sender: FDA-Public Use
  Company Number: TW-ROCHE-2960142

PATIENT
  Age: 67 Year
  Sex: Female

DRUGS (4)
  1. DOXORUBICIN [Suspect]
     Active Substance: DOXORUBICIN
     Indication: Breast cancer
     Route: 065
     Dates: start: 2022, end: 2022
  2. PERJETA [Suspect]
     Active Substance: PERTUZUMAB
     Indication: Breast cancer
     Route: 065
     Dates: start: 20211111, end: 20211111
  3. PERJETA [Suspect]
     Active Substance: PERTUZUMAB
     Route: 065
     Dates: start: 20211129, end: 2022
  4. PERJETA [Suspect]
     Active Substance: PERTUZUMAB
     Route: 065
     Dates: start: 202205

REACTIONS (8)
  - Diarrhoea [Unknown]
  - Hypoaesthesia [Unknown]
  - Asthenia [Not Recovered/Not Resolved]
  - Diarrhoea [Unknown]
  - Vomiting [Unknown]
  - Alopecia [Unknown]
  - Vomiting [Unknown]
  - Syncope [Unknown]

NARRATIVE: CASE EVENT DATE: 20211111
